FAERS Safety Report 7117284-1 (Version None)
Quarter: 2010Q4

REPORT INFORMATION
  Report Type: 
  Country: None (occurrence: None)
  Receive Date: 20101122
  Receipt Date: 20101116
  Transmission Date: 20110411
  Serious: Yes (Other)
  Sender: FDA-Public Use
  Company Number: AT-PFIZER INC-2010151481

PATIENT
  Sex: Female
  Weight: 46 kg

DRUGS (1)
  1. ECALTA [Suspect]
     Indication: FUNGAL TEST POSITIVE
     Dosage: 1 DF, UNK
     Route: 042

REACTIONS (6)
  - CYANOSIS [None]
  - DYSPNOEA [None]
  - HYPERTENSION [None]
  - PARANOIA [None]
  - SYNCOPE [None]
  - TACHYCARDIA [None]
